FAERS Safety Report 7132536-7 (Version None)
Quarter: 2010Q4

REPORT INFORMATION
  Report Type: 
  Country: None (occurrence: None)
  Receive Date: 20101202
  Receipt Date: 20101119
  Transmission Date: 20110411
  Serious: Yes (Hospitalization, Other)
  Sender: FDA-Public Use
  Company Number: PHHY2010DE16241

PATIENT
  Sex: Female
  Weight: 120 kg

DRUGS (2)
  1. CARBAMAZEPINE [Suspect]
     Indication: EPILEPSY
     Dosage: 300 MG IN THE MORNING AND 600 MG IN THE EVENING
     Route: 048
     Dates: end: 20100315
  2. LAMOTRIGINE [Concomitant]
     Indication: EPILEPSY
     Dosage: 200MG, HALF TABLET IN THE MORNING AND HALF A TABLET IN THE EVENING
     Route: 048

REACTIONS (13)
  - CONVULSION [None]
  - DYSLIPIDAEMIA [None]
  - ENURESIS [None]
  - HEPATIC STEATOSIS [None]
  - HYPERCHOLESTEROLAEMIA [None]
  - HYPERTRIGLYCERIDAEMIA [None]
  - HYPONATRAEMIA [None]
  - LIP INJURY [None]
  - LIPOMATOSIS [None]
  - RED BLOOD CELL COUNT DECREASED [None]
  - SPLENOMEGALY [None]
  - THIRST [None]
  - TYPE 2 DIABETES MELLITUS [None]
